FAERS Safety Report 7745591-8 (Version None)
Quarter: 2011Q3

REPORT INFORMATION
  Report Type: 
  Country: None (occurrence: None)
  Receive Date: 20110829
  Receipt Date: 20110822
  Transmission Date: 20111222
  Serious: Yes (Other)
  Sender: FDA-Public Use
  Company Number: WAES 1108FRA00100

PATIENT
  Age: 28 Year
  Sex: Male

DRUGS (5)
  1. TAB RALTEGRAVIR POTASSIUM [Suspect]
     Indication: HIV INFECTION
     Dosage: 400 MG/BID
     Route: 048
     Dates: start: 20110221
  2. RITONAVIR [Suspect]
     Indication: HIV INFECTION
     Dosage: 100 MG/DAILY
     Route: 048
     Dates: start: 20110221
  3. MARAVIROC [Suspect]
     Indication: HIV INFECTION
     Dosage: 150 MG/BID
     Route: 048
     Dates: start: 20110221
  4. EMTRICITABINE (+) TENOFOVIR DISOPROXIL F [Concomitant]
  5. TAB DARUNAVIR [Suspect]
     Indication: HIV INFECTION
     Dosage: 800 MG/DAILY
     Route: 048
     Dates: start: 20110221

REACTIONS (1)
  - GAMMA-GLUTAMYLTRANSFERASE INCREASED [None]
